FAERS Safety Report 6831480-X (Version None)
Quarter: 2010Q3

REPORT INFORMATION
  Report Type: 
  Country: None (occurrence: None)
  Receive Date: 20100712
  Receipt Date: 20100708
  Transmission Date: 20110219
  Serious: Yes (Hospitalization)
  Sender: FDA-Public Use
  Company Number: B0664379A

PATIENT
  Sex: Male

DRUGS (1)
  1. AUGMENTIN '125' [Suspect]
     Indication: PRODUCT USED FOR UNKNOWN INDICATION
     Route: 048
     Dates: start: 20100427, end: 20100428

REACTIONS (5)
  - DERMATITIS BULLOUS [None]
  - INFLAMMATION [None]
  - LEUKOCYTOCLASTIC VASCULITIS [None]
  - PETECHIAE [None]
  - VASCULAR PURPURA [None]
